FAERS Safety Report 23444981 (Version 1)
Quarter: 2024Q1

REPORT INFORMATION
  Report Type: Spontaneous
  Country: FR (occurrence: FR)
  Receive Date: 20240125
  Receipt Date: 20240125
  Transmission Date: 20240410
  Serious: Yes (Hospitalization)
  Sender: FDA-Public Use
  Company Number: None

PATIENT
  Age: 42 Year
  Sex: Male
  Weight: 77.3 kg

DRUGS (2)
  1. ALIMTA [Suspect]
     Active Substance: PEMETREXED DISODIUM
     Indication: Lung adenocarcinoma stage IV
     Dosage: 200 MG, EVERY 3 WEEKS
     Route: 042
     Dates: start: 20230707, end: 20231204
  2. KEYTRUDA [Suspect]
     Active Substance: PEMBROLIZUMAB
     Indication: Lung adenocarcinoma stage IV
     Dosage: 664 MG, EVERY 3 WEEKS
     Route: 042
     Dates: start: 20230707, end: 20231204

REACTIONS (4)
  - Febrile bone marrow aplasia [Recovering/Resolving]
  - Serratia bacteraemia [Recovered/Resolved]
  - Pneumonia bacterial [Recovered/Resolved]
  - Interstitial lung disease [Not Recovered/Not Resolved]

NARRATIVE: CASE EVENT DATE: 20231213
